FAERS Safety Report 13503876 (Version 3)
Quarter: 2017Q2

REPORT INFORMATION
  Report Type: Spontaneous
  Country: US (occurrence: US)
  Receive Date: 20170502
  Receipt Date: 20170629
  Transmission Date: 20170830
  Serious: No
  Sender: FDA-Public Use
  Company Number: US-INCYTE CORPORATION-2017IN003115

PATIENT

DRUGS (2)
  1. JAKAFI [Suspect]
     Active Substance: RUXOLITINIB
     Indication: MYELOPROLIFERATIVE NEOPLASM
     Dosage: 25 MG, BID
     Route: 048
     Dates: start: 20150721
  2. JAKAFI [Suspect]
     Active Substance: RUXOLITINIB
     Dosage: 25 MG, BID
     Route: 048
     Dates: start: 20161030

REACTIONS (14)
  - Flatulence [Unknown]
  - Myalgia [Unknown]
  - Ligament pain [Unknown]
  - Hypoaesthesia [Unknown]
  - Pain [Unknown]
  - Dyspepsia [Unknown]
  - Back pain [Unknown]
  - Pain in extremity [Unknown]
  - Neuralgia [Unknown]
  - Off label use [Unknown]
  - Dizziness [Unknown]
  - Rash [Unknown]
  - Drug dose omission [Unknown]
  - Headache [Unknown]
